FAERS Safety Report 17545032 (Version 1)
Quarter: 2020Q1

REPORT INFORMATION
  Report Type: Spontaneous
  Country: US (occurrence: US)
  Receive Date: 20200306
  Receipt Date: 20200306
  Transmission Date: 20200409
  Serious: Yes (Hospitalization)
  Sender: FDA-Public Use
  Company Number: None

PATIENT
  Sex: Male

DRUGS (2)
  1. DEFERASIROX. [Suspect]
     Active Substance: DEFERASIROX
     Indication: HAEMOCHROMATOSIS
     Route: 048
     Dates: start: 20200104
  2. DEFERASIROX. [Suspect]
     Active Substance: DEFERASIROX
     Indication: PACKED RED BLOOD CELL TRANSFUSION
     Route: 048
     Dates: start: 20200104

REACTIONS (2)
  - Haemoglobin decreased [None]
  - Seizure [None]
